FAERS Safety Report 10256233 (Version 2)
Quarter: 2014Q3

REPORT INFORMATION
  Report Type: Spontaneous
  Country: US (occurrence: US)
  Receive Date: 20140624
  Receipt Date: 20140702
  Transmission Date: 20150326
  Serious: Yes (Hospitalization)
  Sender: FDA-Public Use
  Company Number: US-BAYER-2014-090510

PATIENT
  Age: 65 Year
  Sex: Female
  Weight: 49.89 kg

DRUGS (10)
  1. CLONAZEPAM. [Concomitant]
     Active Substance: CLONAZEPAM
     Dosage: 0.5 MG, UNK
     Route: 048
     Dates: start: 20120625
  2. CLORPRES [Concomitant]
     Active Substance: CHLORTHALIDONE\CLONIDINE HYDROCHLORIDE
     Dosage: 15 MG, UNK
     Route: 048
     Dates: start: 20120625
  3. AVELOX [Suspect]
     Active Substance: MOXIFLOXACIN HYDROCHLORIDE
  4. AMLODIPINE BESILATE [Concomitant]
     Active Substance: AMLODIPINE BESYLATE
     Dosage: 5 MG, QD
     Route: 048
     Dates: start: 20120625
  5. BYSTOLIC [Concomitant]
     Active Substance: NEBIVOLOL HYDROCHLORIDE
     Dosage: 10 MG, BID
     Route: 048
     Dates: start: 20120625
  6. FOLIC ACID. [Concomitant]
     Active Substance: FOLIC ACID
     Dosage: 1 MG, BID
     Route: 048
  7. SODIUM BICARBONATE. [Concomitant]
     Active Substance: SODIUM BICARBONATE
     Dosage: 325 MG, UNK
  8. PAXIL [Concomitant]
     Active Substance: PAROXETINE HYDROCHLORIDE
     Dosage: 10 MG, QD
     Route: 048
  9. CLORPRES [Concomitant]
     Active Substance: CHLORTHALIDONE\CLONIDINE HYDROCHLORIDE
     Dosage: 0.1 MG, UNK
     Route: 048
     Dates: start: 20120625
  10. ARANESP [Concomitant]
     Active Substance: DARBEPOETIN ALFA
     Dosage: UNK UNK, OW
     Route: 042

REACTIONS (5)
  - Chronic obstructive pulmonary disease [None]
  - Wheezing [None]
  - Drug ineffective [None]
  - Bronchospasm [None]
  - Lung hyperinflation [None]
